FAERS Safety Report 15679013 (Version 3)
Quarter: 2025Q3

REPORT INFORMATION
  Report Type: Spontaneous
  Country: EU (occurrence: EU)
  Receive Date: 20181202
  Receipt Date: 20250726
  Transmission Date: 20251021
  Serious: Yes (Hospitalization, Other)
  Sender: AUROBINDO
  Company Number: EU-AUROBINDO-AUR-APL-2018-057878

PATIENT
  Age: 59 Year
  Sex: Female

DRUGS (1)
  1. AMIODARONE [Suspect]
     Active Substance: AMIODARONE
     Indication: Atrial fibrillation
     Route: 065

REACTIONS (7)
  - Pneumonitis [Recovered/Resolved]
  - Pulmonary toxicity [Recovered/Resolved]
  - Dyspnoea [Recovered/Resolved]
  - Pleural effusion [Recovered/Resolved]
  - Palpitations [Recovered/Resolved]
  - Malaise [Recovered/Resolved]
  - Lung opacity [Recovered/Resolved]
